FAERS Safety Report 18579169 (Version 2)
Quarter: 2020Q4

REPORT INFORMATION
  Report Type: Report from Study
  Country: CA (occurrence: CA)
  Receive Date: 20201204
  Receipt Date: 20201214
  Transmission Date: 20210114
  Serious: Yes (Other)
  Sender: FDA-Public Use
  Company Number: CA-SAMSUNG BIOEPIS-SB-2020-20017

PATIENT
  Age: 48 Year
  Sex: Female
  Weight: 78.9 kg

DRUGS (1)
  1. RENFLEXIS [Suspect]
     Active Substance: INFLIXIMAB-ABDA
     Indication: CROHN^S DISEASE
     Route: 042
     Dates: start: 20200219

REACTIONS (6)
  - Weight increased [Unknown]
  - Ill-defined disorder [Unknown]
  - COVID-19 [Recovered/Resolved]
  - Crohn^s disease [Unknown]
  - Blood pressure fluctuation [Unknown]
  - Heart rate increased [Unknown]

NARRATIVE: CASE EVENT DATE: 20201002
